FAERS Safety Report 9553576 (Version 3)
Quarter: 2013Q4

REPORT INFORMATION
  Report Type: Spontaneous
  Country: JP (occurrence: JP)
  Receive Date: 20130925
  Receipt Date: 20131205
  Transmission Date: 20140711
  Serious: Yes (Disabling)
  Sender: FDA-Public Use
  Company Number: JP-EISAI INC-E7389-04208-SPO-JP

PATIENT
  Sex: Female

DRUGS (2)
  1. HALAVEN [Suspect]
     Indication: BREAST CANCER RECURRENT
     Dosage: UNKNOWN
     Route: 041
  2. HALAVEN [Suspect]
     Dosage: DOSE REDUCED BY 25% (DOSE UNKNOWN)
     Route: 041

REACTIONS (1)
  - Peroneal nerve palsy [Recovered/Resolved]
